FAERS Safety Report 6230915-3 (Version None)
Quarter: 2009Q2

REPORT INFORMATION
  Report Type: 
  Country: None (occurrence: None)
  Receive Date: 20090616
  Receipt Date: 20090611
  Transmission Date: 20091009
  Serious: Yes (Death, Other)
  Sender: FDA-Public Use
  Company Number: PHEH2009US05702

PATIENT
  Sex: Male
  Weight: 84.807 kg

DRUGS (1)
  1. EXJADE [Suspect]
     Dosage: 2500 MG, QD
     Route: 048
     Dates: start: 20060607, end: 20090415

REACTIONS (2)
  - ACUTE LEUKAEMIA [None]
  - SPLENIC RUPTURE [None]
